FAERS Safety Report 23225486 (Version 3)
Quarter: 2024Q1

REPORT INFORMATION
  Report Type: Report from Study
  Country: FR (occurrence: FR)
  Receive Date: 20231124
  Receipt Date: 20240118
  Transmission Date: 20240410
  Serious: Yes (Hospitalization)
  Sender: FDA-Public Use
  Company Number: FR-SA-SAC20231121001299

PATIENT
  Age: 59 Year
  Sex: Female
  Weight: 73 kg

DRUGS (12)
  1. ISATUXIMAB [Suspect]
     Active Substance: ISATUXIMAB
     Indication: Plasma cell myeloma
     Dosage: 772 MG, J1 TO J15
     Route: 041
     Dates: start: 20230213, end: 20230213
  2. ISATUXIMAB [Suspect]
     Active Substance: ISATUXIMAB
     Dosage: 772 MG, J1 TO J15
     Route: 041
     Dates: start: 20231113, end: 20231113
  3. ISATUXIMAB [Suspect]
     Active Substance: ISATUXIMAB
     Dosage: 1400 MG, QM
     Route: 058
     Dates: start: 20240108, end: 20240108
  4. CARFILZOMIB [Suspect]
     Active Substance: CARFILZOMIB
     Indication: Plasma cell myeloma
     Dosage: 102.48 MG; J1, J8 AND J15
     Route: 042
     Dates: start: 20230213, end: 20230213
  5. CARFILZOMIB [Suspect]
     Active Substance: CARFILZOMIB
     Dosage: 102.48 MG; J1, J8 AND J15
     Route: 042
     Dates: start: 20231113, end: 20231113
  6. CARFILZOMIB [Suspect]
     Active Substance: CARFILZOMIB
     Dosage: 56 MG FOR 3 WEEKS
     Route: 042
     Dates: start: 20231226, end: 20231226
  7. LENALIDOMIDE [Suspect]
     Active Substance: LENALIDOMIDE
     Indication: Plasma cell myeloma
     Dosage: 25 MG; J1 TO J21
     Route: 048
     Dates: start: 20230213, end: 20230213
  8. LENALIDOMIDE [Suspect]
     Active Substance: LENALIDOMIDE
     Dosage: 25 MG; J1 TO J21
     Route: 048
     Dates: start: 20231117, end: 20231117
  9. LENALIDOMIDE [Suspect]
     Active Substance: LENALIDOMIDE
     Dosage: 25 MG; 21 DAYS OF 28
     Route: 048
     Dates: start: 20240101, end: 20240101
  10. DEXAMETHASONE [Suspect]
     Active Substance: DEXAMETHASONE
     Indication: Plasma cell myeloma
     Dosage: 40 MG; J1, J8, J15, J22
     Route: 048
     Dates: start: 20230213, end: 20230213
  11. DEXAMETHASONE [Suspect]
     Active Substance: DEXAMETHASONE
     Dosage: 40 MG; J1, J8, J15, J22
     Route: 048
     Dates: start: 20231113, end: 20231113
  12. DEXAMETHASONE [Suspect]
     Active Substance: DEXAMETHASONE
     Dosage: 10 MG, QW
     Route: 048
     Dates: start: 20240102, end: 20240102

REACTIONS (2)
  - Thrombotic microangiopathy [Recovered/Resolved]
  - Haematoma [Recovered/Resolved]

NARRATIVE: CASE EVENT DATE: 20231117
